FAERS Safety Report 6993255-0 (Version None)
Quarter: 2010Q3

REPORT INFORMATION
  Report Type: 
  Country: None (occurrence: None)
  Receive Date: 20100917
  Receipt Date: 20100427
  Transmission Date: 20110219
  Serious: No
  Sender: FDA-Public Use
  Company Number: US-ASTRAZENECA-2010SE18795

PATIENT
  Age: 56 Year
  Sex: Female
  Weight: 56.7 kg

DRUGS (1)
  1. SEROQUEL [Suspect]
     Indication: SOMNOLENCE
     Route: 048
     Dates: start: 20081201, end: 20091201

REACTIONS (2)
  - MUSCLE TWITCHING [None]
  - WRONG TECHNIQUE IN DRUG USAGE PROCESS [None]
